FAERS Safety Report 9404526 (Version 8)
Quarter: 2014Q2

REPORT INFORMATION
  Report Type: Spontaneous
  Country: US (occurrence: US)
  Receive Date: 20130717
  Receipt Date: 20140407
  Transmission Date: 20141212
  Serious: Yes (Hospitalization, Other)
  Sender: FDA-Public Use
  Company Number: US-PFIZER INC-2013207114

PATIENT
  Age: 61 Year
  Sex: Male
  Weight: 70.75 kg

DRUGS (26)
  1. XELJANZ [Suspect]
     Indication: RHEUMATOID ARTHRITIS
     Dosage: 5 MG, 2X/DAY
     Route: 048
     Dates: start: 201304, end: 201310
  2. XELJANZ [Suspect]
     Dosage: 5 MG, 2X/DAY
     Route: 048
     Dates: start: 201306
  3. XELJANZ [Suspect]
     Dosage: 5 MG, 2X/DAY
     Route: 048
     Dates: start: 20130710, end: 20131025
  4. HCTZ [Concomitant]
     Dosage: 25 MG
     Route: 048
  5. POTASSIUM CHLORIDE [Concomitant]
     Dosage: 20 MEQ, DAILY
     Route: 048
  6. PREDNISONE [Concomitant]
     Dosage: 10 MG 3.5 TABS DAILY X 14 DAYS
     Route: 048
  7. PREDNISONE [Concomitant]
     Dosage: 10 MG, 3 TABS DAILY X 14 DAYS
     Route: 048
  8. PREDNISONE [Concomitant]
     Dosage: 10 MG, 2.5 TABS DAILY X 14 WEEKS
     Route: 048
  9. PREDNISONE [Concomitant]
     Dosage: 10 MG, 2 TABS DAILY
     Route: 048
  10. ATENOLOL [Concomitant]
     Dosage: 25 MG, DAILY
     Route: 048
  11. ALBUTEROL [Concomitant]
     Dosage: UNK
  12. TRAZODONE [Concomitant]
     Dosage: 50 MG AT BEDTIME AS NEEDED
     Route: 048
  13. FOLIC ACID [Concomitant]
     Dosage: 1 MG
     Route: 048
  14. METHOTREXATE [Concomitant]
     Dosage: 2.5 MG
  15. ACETAMINOPHEN W/OXYCODONE [Concomitant]
     Dosage: 7.5- 325 EVERY 4 HOURS AS NEEDED
     Route: 048
  16. CLONAZEPAM [Concomitant]
     Dosage: 0.5 MG TWO TIMES A DAY AS NEEDED
     Route: 048
  17. LASIX [Concomitant]
     Dosage: 20 MG TAKE TWO TABLETS TWICE A DAY
     Route: 048
  18. IBUPROFEN [Concomitant]
     Dosage: 200 MG, EVERY 6 HOURS AS NEEDED
     Route: 048
  19. OMEPRAZOLE [Concomitant]
     Dosage: 25 MG, DAILY
     Route: 048
  20. OMEPRAZOLE [Concomitant]
     Dosage: 20 MG, DAILY
     Route: 048
  21. PAROXETINE [Concomitant]
     Indication: DEPRESSION
     Dosage: 2 TABLETS (20MG TABLET) EVERY MORNING; CAN TAKE 1 OR 2/DAY
     Route: 048
  22. PAROXETINE [Concomitant]
     Indication: ANXIETY
  23. SILDENAFIL CITRATE [Concomitant]
     Dosage: 25 MG, AS NEEDED
     Route: 048
  24. MULTIVITAMINS [Concomitant]
     Dosage: 1 DF, DAILY
     Route: 048
  25. SODIUM CHLORIDE [Concomitant]
     Dosage: 10 MLS BY INTRA-CATHETER ROUTE EVERY 8 (EIGHT) HOURS
  26. FUROSEMIDE [Concomitant]
     Dosage: 40 MG, 2X/DAY (20 MG TABLET 40MG AM AND 40MG PM)
     Route: 048

REACTIONS (22)
  - Cellulitis [Recovered/Resolved]
  - Animal scratch [Unknown]
  - Pericardial effusion [Unknown]
  - Pleural effusion [Unknown]
  - Dyspnoea [Unknown]
  - Breath sounds abnormal [Unknown]
  - Raynaud^s phenomenon [Unknown]
  - Musculoskeletal stiffness [Unknown]
  - Joint swelling [Unknown]
  - Arthralgia [Unknown]
  - Muscular weakness [Unknown]
  - Back pain [Unknown]
  - Abscess [Unknown]
  - Ingrown hair [Unknown]
  - Rhinorrhoea [Recovering/Resolving]
  - Dry mouth [Unknown]
  - Dry eye [Unknown]
  - Drug effect incomplete [Unknown]
  - Dizziness [Unknown]
  - Peripheral swelling [Unknown]
  - Weight increased [Unknown]
  - Gait disturbance [Unknown]
